FAERS Safety Report 9774605 (Version 2)
Quarter: 2014Q1

REPORT INFORMATION
  Report Type: Spontaneous
  Country: US (occurrence: US)
  Receive Date: 20131220
  Receipt Date: 20140120
  Transmission Date: 20141002
  Serious: Yes (Other)
  Sender: FDA-Public Use
  Company Number: US-DRREDDYS-USA/USA/13/0036495

PATIENT
  Age: 15 Year
  Sex: Male
  Weight: 65.9 kg

DRUGS (4)
  1. ZENATANE [Suspect]
     Indication: ACNE
     Route: 048
     Dates: start: 20131015, end: 20131113
  2. ZENATANE [Suspect]
     Route: 048
     Dates: start: 20131114, end: 20131205
  3. ZENATANE [Suspect]
     Route: 048
     Dates: start: 20131206, end: 20131217
  4. RISPERDAL [Concomitant]
     Indication: MENTAL DISORDER
     Route: 048

REACTIONS (3)
  - Depression [Unknown]
  - Mood swings [Unknown]
  - Anosognosia [Unknown]
